FAERS Safety Report 19957314 (Version 6)
Quarter: 2022Q3

REPORT INFORMATION
  Report Type: Report from Study
  Country: US (occurrence: US)
  Receive Date: 20211014
  Receipt Date: 20220701
  Transmission Date: 20221026
  Serious: Yes (Hospitalization)
  Sender: FDA-Public Use
  Company Number: US-TAKEDA-2021TUS062669

PATIENT
  Age: 5 Year
  Sex: Male
  Weight: 18 kg

DRUGS (22)
  1. TEDUGLUTIDE [Suspect]
     Active Substance: TEDUGLUTIDE
     Indication: Short-bowel syndrome
     Dosage: 73 MILLIGRAM, QD
     Route: 058
     Dates: start: 20200615, end: 20210813
  2. TEDUGLUTIDE [Suspect]
     Active Substance: TEDUGLUTIDE
     Indication: Short-bowel syndrome
     Dosage: 73 MILLIGRAM, QD
     Route: 058
     Dates: start: 20200615, end: 20210813
  3. TEDUGLUTIDE [Suspect]
     Active Substance: TEDUGLUTIDE
     Indication: Short-bowel syndrome
     Dosage: 73 MILLIGRAM, QD
     Route: 058
     Dates: start: 20200615, end: 20210813
  4. TEDUGLUTIDE [Suspect]
     Active Substance: TEDUGLUTIDE
     Indication: Short-bowel syndrome
     Dosage: 73 MILLIGRAM, QD
     Route: 058
     Dates: start: 20200615, end: 20210813
  5. TEDUGLUTIDE [Suspect]
     Active Substance: TEDUGLUTIDE
     Dosage: 0.54 MILLIGRAM, QD
     Route: 058
     Dates: start: 20200615, end: 20201215
  6. TEDUGLUTIDE [Suspect]
     Active Substance: TEDUGLUTIDE
     Dosage: 0.54 MILLIGRAM, QD
     Route: 058
     Dates: start: 20200615, end: 20201215
  7. TEDUGLUTIDE [Suspect]
     Active Substance: TEDUGLUTIDE
     Dosage: 0.54 MILLIGRAM, QD
     Route: 058
     Dates: start: 20200615, end: 20201215
  8. TEDUGLUTIDE [Suspect]
     Active Substance: TEDUGLUTIDE
     Dosage: 0.54 MILLIGRAM, QD
     Route: 058
     Dates: start: 20200615, end: 20201215
  9. TEDUGLUTIDE [Suspect]
     Active Substance: TEDUGLUTIDE
     Dosage: 0.73 MILLIGRAM, QD
     Route: 058
     Dates: start: 20201216
  10. TEDUGLUTIDE [Suspect]
     Active Substance: TEDUGLUTIDE
     Dosage: 0.73 MILLIGRAM, QD
     Route: 058
     Dates: start: 20201216
  11. TEDUGLUTIDE [Suspect]
     Active Substance: TEDUGLUTIDE
     Dosage: 0.73 MILLIGRAM, QD
     Route: 058
     Dates: start: 20201216
  12. TEDUGLUTIDE [Suspect]
     Active Substance: TEDUGLUTIDE
     Dosage: 0.73 MILLIGRAM, QD
     Route: 058
     Dates: start: 20201216
  13. TEDUGLUTIDE [Suspect]
     Active Substance: TEDUGLUTIDE
     Dosage: 0.73 MILLIGRAM, QD
     Route: 058
     Dates: start: 20210813, end: 20210813
  14. TEDUGLUTIDE [Suspect]
     Active Substance: TEDUGLUTIDE
     Dosage: 0.73 MILLIGRAM, QD
     Route: 058
     Dates: start: 20210813, end: 20210813
  15. TEDUGLUTIDE [Suspect]
     Active Substance: TEDUGLUTIDE
     Dosage: 0.73 MILLIGRAM, QD
     Route: 058
     Dates: start: 20210813, end: 20210813
  16. TEDUGLUTIDE [Suspect]
     Active Substance: TEDUGLUTIDE
     Dosage: 0.73 MILLIGRAM, QD
     Route: 058
     Dates: start: 20210813, end: 20210813
  17. SULFAMETHOXAZOLE\TRIMETHOPRIM [Concomitant]
     Active Substance: SULFAMETHOXAZOLE\TRIMETHOPRIM
     Indication: Prophylaxis
     Dosage: 16 MILLIGRAM, QD
     Route: 048
     Dates: end: 20210813
  18. ENOXAPARIN [Concomitant]
     Active Substance: ENOXAPARIN
     Indication: Thrombosis
     Dosage: 18 MILLIGRAM, Q12H
     Route: 058
     Dates: start: 20210811, end: 20210813
  19. CEFAZOLIN [Concomitant]
     Active Substance: CEFAZOLIN
     Indication: Bacterial infection
     Dosage: 760 MILLIGRAM, Q8HR
     Route: 042
     Dates: start: 20210224, end: 20210301
  20. VANCOMYCIN [Concomitant]
     Active Substance: VANCOMYCIN
     Indication: Bacteraemia
     Dosage: 240 MILLIGRAM, Q8HR
     Route: 042
     Dates: start: 20210224, end: 20210224
  21. PIPERACILLIN [Concomitant]
     Active Substance: PIPERACILLIN
     Indication: Bacteraemia
     Dosage: 1620 MILLIGRAM, Q6HR
     Route: 042
     Dates: start: 20210223, end: 20210224
  22. SODIUM CITRATE [Concomitant]
     Active Substance: SODIUM CITRATE
     Dosage: 5 MILLILITER, TID
     Route: 065
     Dates: start: 20210223, end: 20210224

REACTIONS (1)
  - Venous thrombosis [Recovered/Resolved]

NARRATIVE: CASE EVENT DATE: 20210811
